FAERS Safety Report 8353794-7 (Version None)
Quarter: 2012Q2

REPORT INFORMATION
  Report Type: 
  Country: None (occurrence: None)
  Receive Date: 20120511
  Receipt Date: 20111117
  Transmission Date: 20120825
  Serious: No
  Sender: FDA-Public Use
  Company Number: US-GLAXOSMITHKLINE-A0954397A

PATIENT
  Age: 40 Year
  Sex: Female
  Weight: 65.9 kg

DRUGS (5)
  1. HERCEPTIN [Concomitant]
     Route: 042
  2. HYDROMORPHONE HCL [Concomitant]
     Route: 048
  3. DEXAMETHASONE [Concomitant]
     Route: 048
  4. DILAUDID [Concomitant]
     Route: 048
  5. TYKERB [Suspect]
     Dosage: 1250MG PER DAY
     Route: 048

REACTIONS (3)
  - PARAESTHESIA [None]
  - DERMATITIS [None]
  - SKIN CHAPPED [None]
